FAERS Safety Report 21898743 (Version 1)
Quarter: 2023Q1

REPORT INFORMATION
  Report Type: Report from Study
  Country: US (occurrence: US)
  Receive Date: 20230123
  Receipt Date: 20230123
  Transmission Date: 20230418
  Serious: Yes (Other)
  Sender: FDA-Public Use
  Company Number: US-GSKCCFUS-Case-01605217_AE-90702

PATIENT

DRUGS (1)
  1. MEPOLIZUMAB [Suspect]
     Active Substance: MEPOLIZUMAB
     Indication: Asthma
     Dosage: UNK
     Dates: start: 2020

REACTIONS (5)
  - Craniocerebral injury [Unknown]
  - Neck surgery [Unknown]
  - Limb operation [Unknown]
  - Road traffic accident [Recovered/Resolved with Sequelae]
  - Product dose omission issue [Unknown]
